FAERS Safety Report 25569194 (Version 2)
Quarter: 2025Q3

REPORT INFORMATION
  Report Type: Spontaneous
  Country: AU (occurrence: AU)
  Receive Date: 20250716
  Receipt Date: 20250722
  Transmission Date: 20251021
  Serious: Yes (Hospitalization)
  Sender: MYLAN
  Company Number: AU-MYLANLABS-2025M1058539

PATIENT
  Age: 51 Year
  Sex: Female

DRUGS (4)
  1. CLOZARIL [Suspect]
     Active Substance: CLOZAPINE
     Indication: Schizophrenia
     Dates: start: 20210225, end: 20250612
  2. CLOZARIL [Suspect]
     Active Substance: CLOZAPINE
     Route: 048
     Dates: start: 20210225, end: 20250612
  3. CLOZARIL [Suspect]
     Active Substance: CLOZAPINE
     Route: 048
     Dates: start: 20210225, end: 20250612
  4. CLOZARIL [Suspect]
     Active Substance: CLOZAPINE
     Dates: start: 20210225, end: 20250612

REACTIONS (4)
  - Mental impairment [Unknown]
  - Gastrointestinal disorder [Unknown]
  - Hallucination, auditory [Unknown]
  - Suicidal ideation [Unknown]

NARRATIVE: CASE EVENT DATE: 20250601
